FAERS Safety Report 21094396 (Version 2)
Quarter: 2022Q3

REPORT INFORMATION
  Report Type: Spontaneous
  Country: US (occurrence: US)
  Receive Date: 20220718
  Receipt Date: 20220803
  Transmission Date: 20221027
  Serious: Yes (Death, Other)
  Sender: FDA-Public Use
  Company Number: US-PFIZER INC-PV202200023764

PATIENT

DRUGS (2)
  1. VECURONIUM BROMIDE [Suspect]
     Active Substance: VECURONIUM BROMIDE
     Dosage: UNK
  2. VERSED [Suspect]
     Active Substance: MIDAZOLAM HYDROCHLORIDE
     Dosage: UNK

REACTIONS (11)
  - Wrong product administered [Unknown]
  - Death [Fatal]
  - Unresponsive to stimuli [Unknown]
  - Brain injury [Unknown]
  - Brain oedema [Unknown]
  - Cardiac arrest [Unknown]
  - Pulse absent [Unknown]
  - Dyspnoea [Unknown]
  - Myoclonus [Unknown]
  - Neurological symptom [Unknown]
  - Condition aggravated [Unknown]
